APPROVED DRUG PRODUCT: ACITRETIN
Active Ingredient: ACITRETIN
Strength: 25MG
Dosage Form/Route: CAPSULE;ORAL
Application: A217774 | Product #003 | TE Code: AB
Applicant: ALEMBIC PHARMACEUTICALS LTD
Approved: Aug 5, 2024 | RLD: No | RS: No | Type: RX